FAERS Safety Report 7606700-4 (Version None)
Quarter: 2011Q3

REPORT INFORMATION
  Report Type: 
  Country: None (occurrence: None)
  Receive Date: 20110713
  Receipt Date: 20110708
  Transmission Date: 20111222
  Serious: Yes (Other)
  Sender: FDA-Public Use
  Company Number: BR-ROCHE-786152

PATIENT
  Sex: Female
  Weight: 73 kg

DRUGS (7)
  1. SALICYLIC ACID [Concomitant]
  2. BONIVA [Suspect]
     Dosage: DOSE: 150 MG TABLET, FREQUENCY: 1 TABLET.
     Route: 065
     Dates: start: 20110624
  3. LANTUS [Concomitant]
     Dosage: BEFORE THE MEALS
  4. CAPTOPRIL [Concomitant]
     Indication: HYPERTENSION
  5. SIMVASTATIN [Concomitant]
  6. NOVORAPID [Concomitant]
     Dosage: BEFORE THE MEALS
  7. GLUCOFORMIN [Concomitant]

REACTIONS (1)
  - BLOOD GLUCOSE INCREASED [None]
